FAERS Safety Report 6979946-6 (Version None)
Quarter: 2010Q3

REPORT INFORMATION
  Report Type: 
  Country: None (occurrence: None)
  Receive Date: 20100909
  Receipt Date: 20100830
  Transmission Date: 20110219
  Serious: Yes (Disabling, Other)
  Sender: FDA-Public Use
  Company Number: 2010P1001243

PATIENT
  Age: 61 Year
  Sex: Female

DRUGS (2)
  1. TRAMADOL HCL [Suspect]
     Indication: BACK PAIN
     Dosage: 12.5 TO 29 MG;QD; INTH; QD;INTH
     Route: 037
     Dates: start: 19990601, end: 20021101
  2. TRAMADOL HCL [Suspect]
     Indication: BACK PAIN
     Dosage: 12.5 TO 29 MG;QD; INTH; QD;INTH
     Route: 037
     Dates: start: 20021101

REACTIONS (8)
  - GRANULOMA [None]
  - HYPOAESTHESIA [None]
  - INFLAMMATION [None]
  - INTERVERTEBRAL DISC PROTRUSION [None]
  - MASS [None]
  - OFF LABEL USE [None]
  - PARAESTHESIA [None]
  - SPINAL COLUMN STENOSIS [None]
